FAERS Safety Report 25881219 (Version 1)
Quarter: 2025Q4

REPORT INFORMATION
  Report Type: Spontaneous
  Country: HK (occurrence: HK)
  Receive Date: 20251004
  Receipt Date: 20251004
  Transmission Date: 20260118
  Serious: Yes (Other)
  Sender: AMGEN
  Company Number: HK-AMGEN-HKGSP2025192867

PATIENT

DRUGS (3)
  1. ADALIMUMAB [Suspect]
     Active Substance: ADALIMUMAB
     Indication: Rheumatoid arthritis
     Dosage: UNK
     Route: 065
  2. ADALIMUMAB [Suspect]
     Active Substance: ADALIMUMAB
     Indication: Axial spondyloarthritis
  3. ADALIMUMAB [Suspect]
     Active Substance: ADALIMUMAB
     Indication: Psoriatic arthropathy

REACTIONS (9)
  - Adverse event [Unknown]
  - Neoplasm malignant [Unknown]
  - Cytopenia [Unknown]
  - Tuberculosis [Unknown]
  - Dermatitis allergic [Unknown]
  - Drug ineffective [Unknown]
  - Injection site reaction [Unknown]
  - Liver disorder [Unknown]
  - Paradoxical psoriasis [Unknown]
